FAERS Safety Report 9521714 (Version 1)
Quarter: 2013Q1

REPORT INFORMATION
  Report Type: Spontaneous
  Country: US (occurrence: None)
  Receive Date: 20130305
  Receipt Date: 20130305
  Transmission Date: 20140127
  Serious: Yes (Life-Threatening, Disabling, Other)
  Sender: FDA-Public Use
  Company Number: 163-21880-12080198

PATIENT
  Age: 72 Year
  Sex: Female

DRUGS (4)
  1. REVLIMID [Suspect]
     Indication: PLASMA CELL MYELOMA
     Dosage: 21 IN 21 D
     Route: 048
     Dates: start: 20120120
  2. ZOFRAN (ONDANSETRON HYDROCHLORIDE) (TABLETS) [Concomitant]
  3. PRILOSEC (OMEPRAZOLE) (TABLETS) [Concomitant]
  4. GABAPENTIN (GABAPENTIN) (TABLETS) [Concomitant]

REACTIONS (1)
  - Rash pruritic [None]
